FAERS Safety Report 24707325 (Version 1)
Quarter: 2024Q4

REPORT INFORMATION
  Report Type: Spontaneous
  Country: US (occurrence: None)
  Receive Date: 20241206
  Receipt Date: 20241206
  Transmission Date: 20250114
  Serious: Yes (Hospitalization)
  Sender: Public
  Company Number: None

PATIENT
  Age: 77 Year
  Sex: Male

DRUGS (2)
  1. DROXIDOPA [Suspect]
     Active Substance: DROXIDOPA
     Indication: Hypotension
     Dosage: FREQUENCY : 3 TIMES A DAY;?
     Route: 048
     Dates: start: 202407
  2. DROXIDOPA [Suspect]
     Active Substance: DROXIDOPA
     Indication: Haemodialysis

REACTIONS (4)
  - Fall [None]
  - Upper limb fracture [None]
  - Atrial fibrillation [None]
  - Therapy change [None]

NARRATIVE: CASE EVENT DATE: 20241101
